FAERS Safety Report 9177922 (Version 4)
Quarter: 2013Q2

REPORT INFORMATION
  Report Type: Spontaneous
  Country: US (occurrence: US)
  Receive Date: 20130321
  Receipt Date: 20130527
  Transmission Date: 20140414
  Serious: Yes (Death, Hospitalization, Other)
  Sender: FDA-Public Use
  Company Number: US-PFIZER INC-2013092094

PATIENT
  Age: 85 Year
  Sex: Female
  Weight: 60 kg

DRUGS (32)
  1. PROTONIX [Suspect]
     Indication: GASTROOESOPHAGEAL REFLUX DISEASE
     Dosage: 40 MG, 1X/DAY
     Route: 048
  2. PROTONIX [Suspect]
     Dosage: 40 MG, 2X/DAY
     Route: 048
  3. PROCRIT [Suspect]
     Indication: RED BLOOD CELL COUNT DECREASED
     Dosage: 40000 IU, Q2 WKS
     Route: 058
     Dates: start: 201107, end: 20130211
  4. PROCRIT [Suspect]
     Indication: ANAEMIA
  5. PROCRIT [Suspect]
     Indication: ANAEMIA MACROCYTIC
  6. PROCRIT [Suspect]
     Indication: RENAL FAILURE CHRONIC
  7. PROCRIT [Suspect]
     Indication: NEPHROGENIC ANAEMIA
  8. PROCRIT [Suspect]
     Indication: ANAEMIA OF CHRONIC DISEASE
  9. HYZAAR [Concomitant]
     Dosage: 1 DF, 2X/DAY
     Route: 048
  10. HYZAAR [Concomitant]
     Dosage: HYDROCHLOROTHIAZIDE (12.5MG),LOSARTAN POTASSIUM (50 MG), TWICE A DAY (BID)
     Route: 048
  11. ISOSORBIDE [Concomitant]
     Indication: HYPERTENSION
     Dosage: 30 MG, 1X/DAY
  12. PLAVIX [Concomitant]
     Indication: CORONARY ARTERY DISEASE
     Dosage: 75 MG, 1X/DAY
     Route: 048
  13. GLIPIZIDE [Concomitant]
     Indication: BLOOD GLUCOSE ABNORMAL
     Dosage: 2.5 MG, 1X/DAY
  14. GLIPIZIDE [Concomitant]
     Dosage: 2.5 MG 24 HOUR TAB, 2X/DAY
     Route: 048
  15. PRAVASTATIN [Concomitant]
     Indication: BLOOD CHOLESTEROL INCREASED
     Dosage: 40 MG, 1X/DAY
     Route: 048
  16. MAGNESIUM [Concomitant]
     Dosage: UNK
  17. MAGNESIUM [Concomitant]
     Dosage: 30 MG, 3X/DAY
     Route: 048
  18. CENTRUM [Concomitant]
     Dosage: UNK
  19. CENTRUM [Concomitant]
     Dosage: 3,500 UNIT-18MG-0.4MG, Q. DAY
     Route: 048
  20. METOPROLOL [Concomitant]
     Indication: HYPERTENSION
     Dosage: UNK
  21. ALLOPURINOL [Concomitant]
     Dosage: 100 MG, 1X/DAY
     Route: 048
  22. ACETYLSALICYLIC ACID [Concomitant]
     Dosage: 81 MG TABLET DELAYED RELEASE, 1X/DAY
     Route: 048
  23. COUMADINE [Concomitant]
     Dosage: 5 MG, 1X/DAY X 6 DAYS
     Route: 048
  24. CYCLOBENZAPRINE [Concomitant]
     Dosage: 10 MG, 1X/DAY, AT BEDTIME (HS)
     Route: 048
  25. FOLIC ACID [Concomitant]
     Dosage: 400 UG, 1X/DAY
     Route: 048
  26. HYDROCODONE W/ACETAMINOPHEN [Concomitant]
     Indication: PAIN
     Dosage: HYDROCODONE(5MG)-ACETAMINOPHEN(325MG), Q 6 HR PRN
     Route: 048
  27. ISOSORBIDE DINITRATE [Concomitant]
     Dosage: 30 MG, 1X/DAY
     Route: 048
  28. METOPROLOL TARTRATE [Concomitant]
     Dosage: 25 MG, 1X/DAY
     Route: 048
  29. MONTELUKAST [Concomitant]
     Dosage: 10 MG, 1X/DAY
     Route: 048
  30. PREDNISONE [Concomitant]
     Dosage: 5 MG, 1X/DAY
     Route: 048
  31. PROZAC [Concomitant]
     Dosage: 20 MG, 1X/DAY
     Route: 048
  32. TEMAZEPAM [Concomitant]
     Dosage: 7.5 MG, 1X/DAY, AT BED TIME (HS) PRN
     Route: 048

REACTIONS (7)
  - Death [Fatal]
  - Deep vein thrombosis [Recovered/Resolved]
  - Pulmonary embolism [Recovered/Resolved]
  - Nephrolithiasis [Unknown]
  - Gallbladder disorder [Unknown]
  - Red blood cell count decreased [Unknown]
  - Malaise [Unknown]
